FAERS Safety Report 6442395-3 (Version None)
Quarter: 2009Q4

REPORT INFORMATION
  Report Type: 
  Country: None (occurrence: None)
  Receive Date: 20091112
  Receipt Date: 20091027
  Transmission Date: 20100525
  Serious: Yes (Hospitalization)
  Sender: FDA-Public Use
  Company Number: DSA_33329_2009

PATIENT
  Age: 67 Year
  Sex: Male

DRUGS (4)
  1. ENALAPRIL MALEATE [Suspect]
     Indication: HYPERTENSION
     Dosage: 10 MG BID ORAL
  2. IBUPROFEN [Suspect]
     Indication: DRUG USE FOR UNKNOWN INDICATION
     Dosage: 400 MG TID ORAL
     Route: 048
     Dates: start: 20081025, end: 20081025
  3. ASPIRIN LYSINE [Concomitant]
  4. BISOPROLOL FUMARATE [Concomitant]

REACTIONS (10)
  - ASCITES [None]
  - CATARACT [None]
  - GLOMERULONEPHRITIS MEMBRANOUS [None]
  - HAEMODIALYSIS [None]
  - HEPATIC FUNCTION ABNORMAL [None]
  - HYPERGLYCAEMIA [None]
  - LUMBAR VERTEBRAL FRACTURE [None]
  - NEPHROTIC SYNDROME [None]
  - RENAL FAILURE ACUTE [None]
  - TEMPORAL ARTERITIS [None]
